FAERS Safety Report 5514061-X (Version None)
Quarter: 2007Q4

REPORT INFORMATION
  Report Type: 
  Country: None (occurrence: None)
  Receive Date: 20071109
  Receipt Date: 20071109
  Transmission Date: 20080405
  Serious: Yes (Hospitalization)
  Sender: FDA-Public Use
  Company Number: None

PATIENT
  Age: 65 Year
  Sex: Male

DRUGS (15)
  1. ENOXAPARIN SODIUM [Suspect]
     Indication: ATRIAL FIBRILLATION
     Dosage: 100MG -1MG/KG BID SQ
     Route: 058
     Dates: start: 20070402, end: 20070404
  2. ENOXAPARIN SODIUM [Suspect]
     Indication: THROMBOSIS PROPHYLAXIS
     Dosage: 100MG -1MG/KG BID SQ
     Route: 058
     Dates: start: 20070402, end: 20070404
  3. UNKNOWN ANESTHETIC [Suspect]
     Indication: ANAESTHESIA
     Dosage: ONCE IT
     Route: 038
     Dates: start: 20070403, end: 20070403
  4. CLOPIDOGREL [Concomitant]
  5. ASPIRIN [Concomitant]
  6. INSULIN [Concomitant]
  7. GABAPENTIN [Concomitant]
  8. PRINIVIL [Concomitant]
  9. ROTONIX [Concomitant]
  10. LEVOTHYROXINE SODIUM [Concomitant]
  11. TRICOR [Concomitant]
  12. ZOCOR [Concomitant]
  13. EFFEXOR [Concomitant]
  14. UROXATRAL [Concomitant]
  15. PRN NARCOTICS [Concomitant]

REACTIONS (8)
  - BACK PAIN [None]
  - CEREBRAL HAEMATOMA [None]
  - HAEMORRHAGE [None]
  - HYPOAESTHESIA [None]
  - MUSCULAR WEAKNESS [None]
  - PARALYSIS [None]
  - SPINAL CORD NEOPLASM [None]
  - SPINAL HAEMATOMA [None]
